FAERS Safety Report 4350662-2 (Version None)
Quarter: 2004Q2

REPORT INFORMATION
  Report Type: 
  Country: None (occurrence: None)
  Receive Date: 20040428
  Receipt Date: 20040419
  Transmission Date: 20050107
  Serious: Yes (Hospitalization, Other)
  Sender: FDA-Public Use
  Company Number: HQ5102320DEC2000

PATIENT
  Age: 35 Year
  Sex: Female

DRUGS (1)
  1. SIROLIMUS (SIROLIMUS, TABLET) [Suspect]
     Indication: PROPHYLAXIS AGAINST TRANSPLANT REJECTION
     Dosage: 2 MG 1X PER 1 DAY
     Route: 048
     Dates: start: 19981025

REACTIONS (2)
  - BENIGN OVARIAN TUMOUR [None]
  - POLYCYSTIC OVARIES [None]
